FAERS Safety Report 7681008-X (Version None)
Quarter: 2011Q3

REPORT INFORMATION
  Report Type: 
  Country: None (occurrence: None)
  Receive Date: 20110809
  Receipt Date: 20110729
  Transmission Date: 20111222
  Serious: Yes (Hospitalization)
  Sender: FDA-Public Use
  Company Number: 2010005711

PATIENT
  Age: 66 Year
  Sex: Female
  Weight: 68 kg

DRUGS (14)
  1. ASPIRIN [Concomitant]
  2. ATIVAN [Concomitant]
  3. PREDNISONE [Concomitant]
  4. SORAFENIB (SORAFENIB) [Suspect]
     Indication: NON-SMALL CELL LUNG CANCER
     Dosage: 400 MG, BID, ORAL
     Route: 048
     Dates: start: 20101203, end: 20101228
  5. TOPROL-XL [Concomitant]
  6. METFORMIN HCL [Concomitant]
  7. DITROPAN XL [Concomitant]
  8. ZITHROMAX [Concomitant]
  9. FISH OIL (FISH OIL) [Concomitant]
  10. ERLOTINIB (ERLOTINIB HYDROCHLORIDE) TABLET [Suspect]
     Indication: NON-SMALL CELL LUNG CANCER
     Dosage: 150 MG, UID/QD, ORAL
     Route: 048
     Dates: start: 20101119, end: 20101228
  11. LANTUS [Concomitant]
  12. RESTORIL [Concomitant]
  13. IMODIUM [Concomitant]
  14. MAGNESIUM OXIDE (MAGNESIUM OXIDE) [Concomitant]

REACTIONS (14)
  - HAEMOGLOBIN DECREASED [None]
  - HYPOTHYROIDISM [None]
  - CAROTID ARTERY STENOSIS [None]
  - DIARRHOEA [None]
  - ACUTE RESPIRATORY FAILURE [None]
  - TROPONIN INCREASED [None]
  - CANDIDIASIS [None]
  - ATRIAL FIBRILLATION [None]
  - PNEUMONIA ASPIRATION [None]
  - CARDIAC FAILURE ACUTE [None]
  - HYPERLIPIDAEMIA [None]
  - EMBOLIC STROKE [None]
  - THROMBOCYTOPENIA [None]
  - HAEMATOCRIT DECREASED [None]
